FAERS Safety Report 8486259-2 (Version None)
Quarter: 2012Q3

REPORT INFORMATION
  Report Type: 
  Country: None (occurrence: None)
  Receive Date: 20120703
  Receipt Date: 20120703
  Transmission Date: 20120928
  Serious: Yes (Life-Threatening, Other)
  Sender: FDA-Public Use
  Company Number: US-PFIZER INC-2005168457

PATIENT
  Age: 58 Year
  Sex: Female

DRUGS (26)
  1. METHYLPHENIDATE [Interacting]
     Indication: PSYCHOMOTOR RETARDATION
  2. PREDNISONE [Concomitant]
     Route: 065
  3. PRAVASTATIN [Concomitant]
     Route: 065
  4. ASPIRIN [Concomitant]
     Route: 065
  5. VERAPAMIL HCL [Interacting]
     Dosage: 40 MG, SINGLE
     Route: 048
  6. VALGANCICLOVIR [Concomitant]
     Route: 065
  7. DOPAMINE HCL [Interacting]
     Indication: ILL-DEFINED DISORDER
     Dosage: 2.5 UG/KG, /MIN
     Route: 065
  8. PANTOPRAZOLE [Concomitant]
     Route: 065
  9. DOCUSATE SODIUM [Concomitant]
     Route: 065
  10. LEVOFLOXACIN [Concomitant]
     Route: 065
  11. MULTI-VITAMINS [Concomitant]
     Route: 065
  12. EPOGEN [Concomitant]
     Route: 065
  13. NYSTATIN [Concomitant]
     Route: 065
  14. CYCLOPHOSPHAMIDE [Concomitant]
     Route: 065
  15. CALCIUM CITRATE [Concomitant]
     Route: 065
  16. AMPHOTERICIN B [Concomitant]
     Route: 065
  17. TRIMETHOPRIM [Concomitant]
     Route: 065
  18. HEPARIN [Concomitant]
     Route: 058
  19. FERROUS GLUCONATE [Concomitant]
     Route: 065
  20. SULFAMETHOXAZOLE [Concomitant]
     Route: 065
  21. METHYLPHENIDATE [Interacting]
     Indication: DEPRESSION
     Dosage: 5 MG, DAILY
     Route: 065
  22. TACROLIMUS [Concomitant]
     Route: 065
  23. FUROSEMIDE [Concomitant]
     Route: 065
  24. ISOPHANE INSULIN [Concomitant]
     Route: 065
  25. VANCOMYCIN [Concomitant]
     Route: 065
  26. SERTRALINE HYDROCHLORIDE [Suspect]
     Dosage: 25 MG, DAILY
     Route: 065

REACTIONS (5)
  - SUPRAVENTRICULAR TACHYCARDIA [None]
  - ATRIOVENTRICULAR BLOCK SECOND DEGREE [None]
  - HYPOTENSION [None]
  - CARDIAC ARREST [None]
  - DRUG INTERACTION [None]
